FAERS Safety Report 12079656 (Version 14)
Quarter: 2021Q3

REPORT INFORMATION
  Report Type: Spontaneous
  Country: US (occurrence: US)
  Receive Date: 20160216
  Receipt Date: 20210812
  Transmission Date: 20211014
  Serious: Yes (Other)
  Sender: FDA-Public Use
  Company Number: US-PFIZER INC-2016088306

PATIENT
  Age: 62 Year
  Sex: Female

DRUGS (6)
  1. PRISTIQ EXTENDED?RELEASE [Suspect]
     Active Substance: DESVENLAFAXINE SUCCINATE
     Indication: DEPRESSION
     Dosage: UNK, 2X/DAY
  2. PRISTIQ EXTENDED?RELEASE [Suspect]
     Active Substance: DESVENLAFAXINE SUCCINATE
     Indication: BIPOLAR I DISORDER
     Dosage: 100 MG, 1X/DAY (IN THE MORNING (AM))
     Route: 048
     Dates: start: 20120925
  3. PRISTIQ EXTENDED?RELEASE [Suspect]
     Active Substance: DESVENLAFAXINE SUCCINATE
     Indication: PSYCHOTIC BEHAVIOUR
     Dosage: 150 MG, ONCE DAILY (50 MG AND 100 MG, 1 TABLET ONCE A DAY)
     Route: 048
  4. VERAPAMIL HCL [Concomitant]
     Active Substance: VERAPAMIL HYDROCHLORIDE
     Indication: BLOOD PRESSURE ABNORMAL
     Dosage: 240 MG, 1X/DAY
     Dates: start: 1992
  5. CHANTIX [Concomitant]
     Active Substance: VARENICLINE TARTRATE
     Dosage: UNK, AS NEEDED (DAYTIME)
     Dates: start: 2014
  6. RISPERDAL [Concomitant]
     Active Substance: RISPERIDONE
     Indication: SLEEP DISORDER
     Dosage: 1X/DAY (AT BED TIME)
     Dates: start: 2000

REACTIONS (4)
  - Mental impairment [Recovered/Resolved]
  - Crying [Recovered/Resolved]
  - Depressed mood [Unknown]
  - Off label use [Unknown]
